FAERS Safety Report 22263743 (Version 2)
Quarter: 2023Q2

REPORT INFORMATION
  Report Type: Report from Study
  Country: US (occurrence: US)
  Receive Date: 20230428
  Receipt Date: 20230605
  Transmission Date: 20230722
  Serious: Yes (Hospitalization, Other)
  Sender: FDA-Public Use
  Company Number: US-UCBSA-2023021692

PATIENT
  Age: 78 Year
  Sex: Female
  Weight: 79.365 kg

DRUGS (1)
  1. BRIVARACETAM [Suspect]
     Active Substance: BRIVARACETAM
     Indication: Seizure
     Dosage: 100 MILLIGRAM, 2X/DAY (BID)
     Dates: start: 201801

REACTIONS (2)
  - Intervertebral disc protrusion [Recovered/Resolved with Sequelae]
  - Spinal operation [Recovered/Resolved with Sequelae]

NARRATIVE: CASE EVENT DATE: 20230331
